FAERS Safety Report 5656078-0 (Version None)
Quarter: 2008Q1

REPORT INFORMATION
  Report Type: 
  Country: None (occurrence: None)
  Receive Date: 20080307
  Receipt Date: 20080226
  Transmission Date: 20080703
  Serious: Yes (Other)
  Sender: FDA-Public Use
  Company Number: US-PFIZER INC-2008019694

PATIENT
  Sex: Female
  Weight: 64.545 kg

DRUGS (4)
  1. CHANTIX [Suspect]
     Dates: start: 20080201, end: 20080201
  2. ALL OTHER THERAPEUTIC PRODUCTS [Concomitant]
  3. ANTIHYPERTENSIVES [Concomitant]
  4. ZOLOFT [Concomitant]

REACTIONS (8)
  - FEAR [None]
  - FLIGHT OF IDEAS [None]
  - NERVOUSNESS [None]
  - OBSESSIVE-COMPULSIVE DISORDER [None]
  - PALPITATIONS [None]
  - PANIC ATTACK [None]
  - ROAD TRAFFIC ACCIDENT [None]
  - SLEEP DISORDER [None]
